FAERS Safety Report 7128312-1 (Version None)
Quarter: 2010Q4

REPORT INFORMATION
  Report Type: 
  Country: None (occurrence: None)
  Receive Date: 20101130
  Receipt Date: 20101119
  Transmission Date: 20110411
  Serious: Yes (Hospitalization)
  Sender: FDA-Public Use
  Company Number: PHHY2010CH75605

PATIENT
  Age: 15 Year
  Sex: Female

DRUGS (1)
  1. VOLTAREN [Suspect]
     Indication: BACK PAIN
     Dosage: 50 MG
     Route: 048
     Dates: start: 20101108

REACTIONS (4)
  - GASTROINTESTINAL PAIN [None]
  - MALAISE [None]
  - OVERDOSE [None]
  - POISONING [None]
